FAERS Safety Report 5171297-8 (Version None)
Quarter: 2006Q4

REPORT INFORMATION
  Report Type: 
  Country: None (occurrence: None)
  Receive Date: 20061213
  Receipt Date: 20060724
  Transmission Date: 20070319
  Serious: Yes (Other)
  Sender: FDA-Public Use
  Company Number: US-AMGEN-KDL187513

PATIENT
  Sex: Female
  Weight: 82.5 kg

DRUGS (4)
  1. ENBREL [Suspect]
     Indication: RHEUMATOID ARTHRITIS
     Route: 058
     Dates: start: 20050601, end: 20060504
  2. METHOTREXATE [Concomitant]
     Dates: start: 19980113
  3. LEFLUNOMIDE [Concomitant]
     Dates: start: 20040101
  4. PREDNISONE TAB [Concomitant]
     Dates: start: 20011116

REACTIONS (3)
  - CONDITION AGGRAVATED [None]
  - RHEUMATOID ARTHRITIS [None]
  - VULVAL CANCER [None]
